FAERS Safety Report 17751827 (Version 1)
Quarter: 2020Q2

REPORT INFORMATION
  Report Type: Spontaneous
  Country: US (occurrence: US)
  Receive Date: 20200506
  Receipt Date: 20200506
  Transmission Date: 20200714
  Serious: Yes (Other)
  Sender: FDA-Public Use
  Company Number: US-ASTRAZENECA-2020SE57588

PATIENT
  Sex: Male

DRUGS (10)
  1. GABAPENTIN. [Concomitant]
     Active Substance: GABAPENTIN
     Indication: PAIN
  2. METFORMIN [Concomitant]
     Active Substance: METFORMIN HYDROCHLORIDE
  3. PROBIOTICS [Concomitant]
     Active Substance: PROBIOTICS NOS
     Indication: GASTROINTESTINAL DISORDER
     Dosage: UNKNOWN DOSE DAILY
  4. METOPROLOL. [Concomitant]
     Active Substance: METOPROLOL
     Indication: HYPERTENSION
  5. GLIMEPIRIDE. [Concomitant]
     Active Substance: GLIMEPIRIDE
  6. FLUCONAZOLE. [Suspect]
     Active Substance: FLUCONAZOLE
     Dosage: UNKNOWN DOSE
     Route: 065
  7. BABY ASPIRIN [Concomitant]
     Active Substance: ASPIRIN
  8. ELIQUIS [Concomitant]
     Active Substance: APIXABAN
  9. FARXIGA [Suspect]
     Active Substance: DAPAGLIFLOZIN PROPANEDIOL
     Dosage: UNKNOWN DOSE DAILY
     Route: 048
     Dates: end: 202002
  10. GRISEOFULVIN ULTRA [Concomitant]

REACTIONS (17)
  - Physical disability [Unknown]
  - Anal haemorrhage [Recovering/Resolving]
  - Quality of life decreased [Unknown]
  - Arthralgia [Unknown]
  - Gangrene [Recovering/Resolving]
  - Suicidal ideation [Not Recovered/Not Resolved]
  - Testicular swelling [Unknown]
  - Bacterial infection [Recovering/Resolving]
  - Back pain [Unknown]
  - Micturition urgency [Recovering/Resolving]
  - Thirst [Unknown]
  - Skin erosion [Recovering/Resolving]
  - Scrotal swelling [Unknown]
  - Rash [Recovering/Resolving]
  - Urinary tract infection [Recovering/Resolving]
  - Fungal infection [Recovering/Resolving]
  - Arrhythmia [Not Recovered/Not Resolved]
